FAERS Safety Report 6516275-9 (Version None)
Quarter: 2009Q4

REPORT INFORMATION
  Report Type: 
  Country: None (occurrence: None)
  Receive Date: 20091223
  Receipt Date: 20091118
  Transmission Date: 20100525
  Serious: Yes (Death, Other)
  Sender: FDA-Public Use
  Company Number: US-ROCHE-587820

PATIENT
  Age: 54 Year
  Sex: Female

DRUGS (13)
  1. TRASTUZUMAB [Suspect]
     Route: 042
     Dates: end: 20040501
  2. TRASTUZUMAB [Suspect]
     Route: 042
     Dates: start: 20040101
  3. TRASTUZUMAB [Suspect]
     Dosage: ON CYCLE 1, DAY 1; LOADING DOSE
     Route: 042
     Dates: start: 20060801, end: 20060801
  4. TRASTUZUMAB [Suspect]
     Dosage: ON DAY 1 OF EACH SUBSEQUENT 3 WEEK CYCLE; MAINTENANCE DOSE
     Route: 042
     Dates: start: 20060822, end: 20060912
  5. PERTUZUMAB [Suspect]
     Dosage: ON CYCLE 1, DAY 2
     Route: 042
     Dates: start: 20060801
  6. PERTUZUMAB [Suspect]
     Dosage: ON DAY 1 OF EACH SUBSEQUENT 3 WEEK CYCLE
     Route: 042
     Dates: end: 20060912
  7. WELLBUTRIN [Concomitant]
  8. OXYCONTIN [Concomitant]
  9. GABAPENTIN [Concomitant]
  10. OXYCODONE AND ACETAMINOPHEN [Concomitant]
  11. VINORELBINE [Concomitant]
  12. PACLITAXEL [Concomitant]
  13. GEMCITABINE [Concomitant]

REACTIONS (3)
  - CARDIAC FAILURE CONGESTIVE [None]
  - EJECTION FRACTION DECREASED [None]
  - MALIGNANT NEOPLASM PROGRESSION [None]
